FAERS Safety Report 8437188-1 (Version None)
Quarter: 2012Q2

REPORT INFORMATION
  Report Type: 
  Country: None (occurrence: None)
  Receive Date: 20120614
  Receipt Date: 20120308
  Transmission Date: 20120825
  Serious: Yes (Other)
  Sender: FDA-Public Use
  Company Number: US-AMGEN-USASP2011050624

PATIENT
  Age: 46 Year
  Sex: Female
  Weight: 85.261 kg

DRUGS (6)
  1. CLONIDINE [Concomitant]
     Dosage: UNK
     Dates: start: 20041104
  2. FASLODEX [Concomitant]
     Dosage: UNK
     Dates: start: 20110916
  3. SYNTHROID [Concomitant]
     Indication: HYPOTHYROIDISM
     Dosage: 20 MUG, UNK
     Route: 048
     Dates: start: 20040504
  4. XGEVA [Suspect]
     Indication: METASTASES TO BONE
     Dosage: 120 MG, Q4WK
     Route: 058
     Dates: start: 20110727, end: 20110824
  5. AROMASIN [Concomitant]
     Dosage: UNK
     Dates: start: 20110916
  6. GLYBURIDE [Concomitant]
     Indication: DIABETES MELLITUS
     Dosage: 5 MG, UNK
     Route: 048
     Dates: start: 20110120

REACTIONS (1)
  - OSTEONECROSIS OF JAW [None]
